FAERS Safety Report 4862698-3 (Version None)
Quarter: 2005Q4

REPORT INFORMATION
  Report Type: 
  Country: None (occurrence: None)
  Receive Date: 20051221
  Receipt Date: 20050413
  Transmission Date: 20060501
  Serious: Yes (Hospitalization)
  Sender: FDA-Public Use
  Company Number: US-MERCK-0504USA02170

PATIENT
  Age: 52 Year
  Sex: Male
  Weight: 102 kg

DRUGS (1)
  1. VIOXX [Suspect]
     Route: 048
     Dates: start: 20020501, end: 20040601

REACTIONS (4)
  - ACUTE MYOCARDIAL INFARCTION [None]
  - LIPIDS ABNORMAL [None]
  - OSTEOARTHRITIS [None]
  - OSTEONECROSIS [None]
